FAERS Safety Report 6845571-0 (Version None)
Quarter: 2010Q3

REPORT INFORMATION
  Report Type: 
  Country: None (occurrence: None)
  Receive Date: 20100713
  Receipt Date: 20100707
  Transmission Date: 20110219
  Serious: Yes (Death)
  Sender: FDA-Public Use
  Company Number: 2010US002662

PATIENT
  Age: 37 Year
  Sex: Female

DRUGS (16)
  1. PROGRAF [Suspect]
     Indication: HEART TRANSPLANT
     Dosage: 1 MG, BID, ORAL
     Route: 048
     Dates: start: 20071230, end: 20100124
  2. ASPIRIN [Concomitant]
  3. BACTRIM DS [Concomitant]
  4. CELLCEPT [Concomitant]
  5. DIFLUCAN [Concomitant]
  6. DIOVAN [Concomitant]
  7. PEPCID (CALCIUM CARBONATE) [Concomitant]
  8. FERROUS SULFATE TAB [Concomitant]
  9. FOLIC ACID [Concomitant]
  10. LASIX [Concomitant]
  11. MULTIVITAMINS (ASCORBIC ACID, ERGOCALCIFEROL, FOLIC ACID, NICOTINAMIDE [Concomitant]
  12. NYSTATIN [Concomitant]
  13. POTASSIUM CHLORIDE [Concomitant]
  14. PRAVASTATIN [Concomitant]
  15. PREDNISONE TAB [Concomitant]
  16. ASCORBIC ACID [Concomitant]

REACTIONS (1)
  - HEART TRANSPLANT REJECTION [None]
